FAERS Safety Report 9596586 (Version 1)
Quarter: 2013Q4

REPORT INFORMATION
  Report Type: Spontaneous
  Country: US (occurrence: US)
  Receive Date: 20131004
  Receipt Date: 20131004
  Transmission Date: 20140711
  Serious: No
  Sender: FDA-Public Use
  Company Number: US-PFIZER INC-2013280527

PATIENT
  Age: 41 Year
  Sex: Female
  Weight: 92.97 kg

DRUGS (16)
  1. XELJANZ [Suspect]
     Indication: RHEUMATOID ARTHRITIS
     Dosage: 5 MG, 2X/DAY
     Route: 048
     Dates: start: 201306, end: 201308
  2. TRAZODONE [Concomitant]
     Dosage: 100 MG, UNK
  3. FOLIC ACID [Concomitant]
  4. CYMBALTA [Concomitant]
     Dosage: 30 MG, UNK
  5. METHOTREXATE [Concomitant]
     Dosage: 2.5 MG, UNK
  6. LEFLUNOMIDE [Concomitant]
     Dosage: 10 MG, UNK
  7. MONTELUKAST [Concomitant]
     Dosage: 10 MG, UNK
  8. HYDROCHLOROTHIAZID [Concomitant]
     Dosage: 12.5 MG, UNK
  9. TURMERIC [Concomitant]
     Dosage: 500 MG, UNK
  10. VITAMIN B6 [Concomitant]
     Dosage: 250 MG, UNK
  11. ACIDOPHILUS [Concomitant]
     Dosage: UNK
  12. POTASSIUM GLUCONATE [Concomitant]
     Dosage: 2.5 MEQ, UNK
  13. VITAMIN D [Concomitant]
     Dosage: UNK
  14. CALCIUM/MAGNESIUM/PHOSPHORUS [Concomitant]
     Dosage: UNK
  15. ZINC [Concomitant]
     Dosage: UNK
  16. SULINDAC [Concomitant]
     Dosage: 150 MG, UNK

REACTIONS (1)
  - Hepatic enzyme increased [Unknown]
